FAERS Safety Report 4971362-1 (Version None)
Quarter: 2006Q2

REPORT INFORMATION
  Report Type: 
  Country: None (occurrence: None)
  Receive Date: 20060406
  Receipt Date: 20060324
  Transmission Date: 20061013
  Serious: Yes (Hospitalization)
  Sender: FDA-Public Use
  Company Number: 2006042551

PATIENT
  Age: 61 Year
  Sex: Female

DRUGS (1)
  1. CABERGOLINE [Suspect]
     Indication: RESTLESS LEGS SYNDROME
     Dosage: 1 MG, ORAL
     Route: 048
     Dates: start: 20050101

REACTIONS (6)
  - ABDOMINAL DISTENSION [None]
  - FATIGUE [None]
  - HEARING IMPAIRED [None]
  - NARCOLEPSY [None]
  - PANCREATIC INSUFFICIENCY [None]
  - RECTAL HAEMORRHAGE [None]
